FAERS Safety Report 14530337 (Version 1)
Quarter: 2018Q1

REPORT INFORMATION
  Report Type: Spontaneous
  Country: ES (occurrence: ES)
  Receive Date: 20180214
  Receipt Date: 20180214
  Transmission Date: 20180509
  Serious: Yes (Other)
  Sender: FDA-Public Use
  Company Number: ES-SA-2018SA031886

PATIENT
  Age: 31 Year
  Sex: Male
  Weight: 102 kg

DRUGS (6)
  1. SALBUTAMOL [Concomitant]
     Active Substance: ALBUTEROL
     Indication: ASTHMA
     Route: 055
     Dates: start: 20160901
  2. CITALOPRAM [Concomitant]
     Active Substance: CITALOPRAM HYDROBROMIDE
     Indication: PERSISTENT DEPRESSIVE DISORDER
     Route: 065
     Dates: start: 20160901
  3. LEMTRADA [Suspect]
     Active Substance: ALEMTUZUMAB
     Indication: RELAPSING-REMITTING MULTIPLE SCLEROSIS
     Route: 041
     Dates: start: 20170717, end: 20170721
  4. OMEPRAZOLE. [Concomitant]
     Active Substance: OMEPRAZOLE
     Indication: DYSPEPSIA
     Route: 065
     Dates: start: 20170101
  5. CIDINE [Concomitant]
     Indication: DYSPEPSIA
     Route: 065
     Dates: start: 20170101
  6. BECLOMETASONE DIPROPIONATE/FORMOTEROL FUMARATE [Concomitant]
     Indication: ASTHMA
     Dosage: 100/6 MCG 2 INHALATIONS/12 HOURS
     Dates: start: 20160901

REACTIONS (2)
  - Lymphopenia [Recovering/Resolving]
  - Leukopenia [Recovering/Resolving]

NARRATIVE: CASE EVENT DATE: 20170717
